FAERS Safety Report 25044235 (Version 2)
Quarter: 2025Q2

REPORT INFORMATION
  Report Type: Spontaneous
  Country: US (occurrence: US)
  Receive Date: 20250306
  Receipt Date: 20250507
  Transmission Date: 20250716
  Serious: No
  Sender: SANDOZ
  Company Number: US-SANDOZ-SDZ2025US013139

PATIENT
  Age: 42 Year
  Sex: Female

DRUGS (6)
  1. ESTRADIOL [Suspect]
     Active Substance: ESTRADIOL
     Indication: Product used for unknown indication
     Route: 062
     Dates: start: 20250208
  2. ESTRADIOL [Suspect]
     Active Substance: ESTRADIOL
     Route: 062
     Dates: start: 20250218
  3. ESTRADIOL [Suspect]
     Active Substance: ESTRADIOL
     Route: 062
     Dates: start: 202502
  4. ESTRADIOL [Suspect]
     Active Substance: ESTRADIOL
     Indication: Product used for unknown indication
     Route: 062
     Dates: start: 20250208
  5. ESTRADIOL [Suspect]
     Active Substance: ESTRADIOL
     Route: 062
     Dates: start: 20250218
  6. ESTRADIOL [Suspect]
     Active Substance: ESTRADIOL
     Route: 062
     Dates: start: 202502

REACTIONS (3)
  - Wrong technique in product usage process [Unknown]
  - Incorrect dose administered [Unknown]
  - Product adhesion issue [Unknown]

NARRATIVE: CASE EVENT DATE: 20250211
